FAERS Safety Report 4634718-2 (Version None)
Quarter: 2005Q2

REPORT INFORMATION
  Report Type: 
  Country: None (occurrence: None)
  Receive Date: 20050413
  Receipt Date: 20050413
  Transmission Date: 20051028
  Serious: Yes (Other)
  Sender: FDA-Public Use
  Company Number: None

PATIENT
  Age: 69 Year
  Sex: Female
  Weight: 77.1115 kg

DRUGS (2)
  1. FOSAMAX [Suspect]
     Indication: BONE DENSITY DECREASED
     Dosage: 1 X WKLY
     Dates: start: 20050206
  2. FOSAMAX [Suspect]
     Indication: BONE DENSITY DECREASED
     Dosage: 1 X WKLY
     Dates: start: 20050306

REACTIONS (5)
  - ANGER [None]
  - GASTROINTESTINAL OEDEMA [None]
  - OEDEMA PERIPHERAL [None]
  - PAIN IN EXTREMITY [None]
  - WEIGHT INCREASED [None]
